FAERS Safety Report 8017179-5 (Version None)
Quarter: 2012Q1

REPORT INFORMATION
  Report Type: 
  Country: None (occurrence: None)
  Receive Date: 20120102
  Receipt Date: 20111221
  Transmission Date: 20120608
  Serious: Yes (Other)
  Sender: FDA-Public Use
  Company Number: US-ROCHE-784601

PATIENT
  Sex: Female
  Weight: 69.916 kg

DRUGS (2)
  1. ACCUTANE [Suspect]
     Dosage: 40/80 MG
     Dates: start: 20000306, end: 20000401
  2. ACCUTANE [Suspect]
     Indication: ACNE
     Route: 065

REACTIONS (9)
  - STRESS [None]
  - ILEAL STENOSIS [None]
  - CROHN'S DISEASE [None]
  - IRRITABLE BOWEL SYNDROME [None]
  - PRURITUS [None]
  - INFLAMMATORY BOWEL DISEASE [None]
  - HAEMORRHOIDS [None]
  - ILEAL FISTULA [None]
  - RASH [None]
